FAERS Safety Report 7108859-4 (Version None)
Quarter: 2010Q4

REPORT INFORMATION
  Report Type: 
  Country: None (occurrence: None)
  Receive Date: 20101117
  Receipt Date: 20101110
  Transmission Date: 20110411
  Serious: Yes (Hospitalization)
  Sender: FDA-Public Use
  Company Number: US-ABBOTT-10P-163-0684801-00

PATIENT
  Sex: Female
  Weight: 58.566 kg

DRUGS (7)
  1. HUMIRA [Suspect]
     Indication: CROHN'S DISEASE
     Route: 058
     Dates: start: 20100801
  2. COLESTID [Concomitant]
     Indication: CROHN'S DISEASE
  3. PRILOSEC [Concomitant]
     Indication: DYSPEPSIA
  4. VITAMIN B-12 [Concomitant]
     Indication: HYPOVITAMINOSIS
  5. LYRICA [Concomitant]
     Indication: FIBROMYALGIA
  6. PREDNISONE [Concomitant]
     Indication: FIBROMYALGIA
  7. AMBIEN [Concomitant]
     Indication: INSOMNIA

REACTIONS (1)
  - HAEMANGIOMA [None]
